FAERS Safety Report 9512361 (Version 5)
Quarter: 2013Q4

REPORT INFORMATION
  Report Type: Report from Study
  Country: JP (occurrence: JP)
  Receive Date: 20130910
  Receipt Date: 20131101
  Transmission Date: 20140711
  Serious: Yes (Hospitalization)
  Sender: FDA-Public Use
  Company Number: JP-PFIZER INC-2013249737

PATIENT
  Age: 36 Year
  Sex: Female
  Weight: 53 kg

DRUGS (8)
  1. SIROLIMUS [Suspect]
     Indication: LYMPHANGIOLEIOMYOMATOSIS
     Dosage: 2 MG, 1X/DAY
     Route: 048
     Dates: start: 20121101, end: 20121114
  2. SIROLIMUS [Suspect]
     Dosage: 3 MG, 1X/DAY
     Route: 048
     Dates: start: 20121115, end: 20130813
  3. GENTACIN OINTMENT 0.1% [Concomitant]
     Indication: FIBROMA
     Dosage: UNK
     Route: 062
     Dates: start: 20130116
  4. ASTAT CREAM [Concomitant]
     Indication: FIBROMA
     Dosage: UNK
     Route: 062
     Dates: start: 20130116
  5. TAKEDA KANPO BEMPIYAKU [Concomitant]
     Indication: CONSTIPATION
     Dosage: UNK
     Route: 048
     Dates: start: 20130131
  6. DEXALTIN ORAL OINTMENT [Concomitant]
     Indication: INFECTION PROPHYLAXIS
     Dosage: UNK
     Dates: start: 20121121
  7. ISODINE GARGLE SOLUTION 7% [Concomitant]
     Indication: INFECTION PROPHYLAXIS
     Dosage: UNK
     Dates: start: 20121121
  8. LEXOTAN [Concomitant]
     Indication: ANXIETY
     Dosage: UNK
     Route: 048
     Dates: start: 20120814

REACTIONS (1)
  - Ovarian cyst [Recovered/Resolved]
